FAERS Safety Report 16867695 (Version 1)
Quarter: 2019Q3

REPORT INFORMATION
  Report Type: Spontaneous
  Country: PL (occurrence: PL)
  Receive Date: 20190930
  Receipt Date: 20190930
  Transmission Date: 20191005
  Serious: Yes (Life-Threatening, Hospitalization, Other)
  Sender: FDA-Public Use
  Company Number: PHHY2019PL225171

PATIENT
  Age: 14 Year
  Sex: Female
  Weight: 58 kg

DRUGS (8)
  1. OMNITROPE [Suspect]
     Active Substance: SOMATROPIN
     Indication: GROWTH ACCELERATED
     Dosage: UNK, QD, RECOMBINANT HUMAN GH IN A DOSE OF 0.33-0.047 MG/KG/DAY
     Route: 065
     Dates: end: 201210
  2. OESCLIM [Suspect]
     Active Substance: ESTRADIOL
     Dosage: 25 UG, QD
     Route: 065
  3. OESCLIM [Suspect]
     Active Substance: ESTRADIOL
     Indication: HORMONE REPLACEMENT THERAPY
     Dosage: UNK, CONTINUOUSLY INCREASED DURING A YEAR
     Route: 065
  4. LEVOTHYROXINE. [Concomitant]
     Active Substance: LEVOTHYROXINE
     Indication: HYPOTHYROIDISM
     Dosage: 75 UG, QD
     Route: 065
  5. OESCLIM [Suspect]
     Active Substance: ESTRADIOL
     Dosage: 6.25 UG, QD
     Route: 065
     Dates: start: 201111
  6. LEVOTHYROXINE. [Concomitant]
     Active Substance: LEVOTHYROXINE
     Indication: AUTOIMMUNE THYROIDITIS
     Dosage: UNK, MODIFIED DOSES
     Route: 065
  7. GENOTROPIN [Suspect]
     Active Substance: SOMATROPIN
     Indication: GROWTH ACCELERATED
     Dosage: UNK, QD, RECOMBINANT HUMAN GH IN A DOSE OF 0.33-0.047 MG/KG/DAY
     Route: 065
     Dates: start: 200808
  8. PROGESTERONE. [Concomitant]
     Active Substance: PROGESTERONE
     Indication: HORMONE REPLACEMENT THERAPY
     Dosage: UNK
     Route: 065

REACTIONS (1)
  - Papillary thyroid cancer [Recovered/Resolved]

NARRATIVE: CASE EVENT DATE: 201210
